FAERS Safety Report 14142328 (Version 2)
Quarter: 2017Q4

REPORT INFORMATION
  Report Type: Spontaneous
  Country: US (occurrence: US)
  Receive Date: 20171030
  Receipt Date: 20171121
  Transmission Date: 20180321
  Serious: Yes (Other)
  Sender: FDA-Public Use
  Company Number: PHEH2017US034181

PATIENT
  Age: 45 Year
  Sex: Female
  Weight: 65 kg

DRUGS (1)
  1. GILENYA [Suspect]
     Active Substance: FINGOLIMOD HYDROCHLORIDE
     Indication: MULTIPLE SCLEROSIS
     Dosage: UNK UNK, QD
     Route: 048
     Dates: start: 2011, end: 20170421

REACTIONS (4)
  - Leukopenia [Unknown]
  - Intraductal papilloma of breast [Recovered/Resolved]
  - Lymphopenia [Recovering/Resolving]
  - JC virus test positive [Not Recovered/Not Resolved]

NARRATIVE: CASE EVENT DATE: 20140210
